FAERS Safety Report 8264482-X (Version None)
Quarter: 2012Q2

REPORT INFORMATION
  Report Type: 
  Country: None (occurrence: None)
  Receive Date: 20120406
  Receipt Date: 20120403
  Transmission Date: 20120825
  Serious: Yes (Other)
  Sender: FDA-Public Use
  Company Number: US-PFIZER INC-2012084662

PATIENT
  Sex: Female
  Weight: 58.957 kg

DRUGS (1)
  1. VFEND [Suspect]
     Dosage: UNK, 2X/DAY
     Route: 048
     Dates: start: 20120101

REACTIONS (3)
  - PLATELET COUNT ABNORMAL [None]
  - RED BLOOD CELL ABNORMALITY [None]
  - WHITE BLOOD CELL DISORDER [None]
